FAERS Safety Report 5953647-5 (Version None)
Quarter: 2008Q4

REPORT INFORMATION
  Report Type: 
  Country: None (occurrence: None)
  Receive Date: 20081114
  Receipt Date: 20081031
  Transmission Date: 20090506
  Serious: Yes (Other)
  Sender: FDA-Public Use
  Company Number: B0545352A

PATIENT
  Age: 44 Year
  Sex: Female

DRUGS (8)
  1. KIVEXA [Suspect]
     Indication: HIV INFECTION
     Route: 065
     Dates: start: 20060202, end: 20060216
  2. EPIVIR [Suspect]
     Indication: HIV INFECTION
     Route: 048
     Dates: start: 20060217
  3. TELZIR [Suspect]
     Indication: HIV INFECTION
     Route: 065
     Dates: start: 20060922
  4. KALETRA [Suspect]
     Indication: HIV INFECTION
     Route: 048
     Dates: start: 20060202
  5. ZERIT [Suspect]
     Indication: HIV INFECTION
     Route: 048
     Dates: start: 20060217
  6. TRUVADA [Suspect]
     Indication: HIV INFECTION
     Route: 065
     Dates: start: 20060324
  7. NORVIR [Suspect]
     Indication: HIV INFECTION
     Route: 065
     Dates: start: 20060922
  8. COMBIVIR [Concomitant]
     Indication: HIV INFECTION
     Route: 048

REACTIONS (5)
  - DRUG RESISTANCE [None]
  - GASTROINTESTINAL DISORDER [None]
  - MITOCHONDRIAL CYTOPATHY [None]
  - MYOSITIS [None]
  - SKIN DISORDER [None]
